FAERS Safety Report 13925759 (Version 2)
Quarter: 2018Q1

REPORT INFORMATION
  Report Type: Report from Study
  Country: US (occurrence: US)
  Receive Date: 20170831
  Receipt Date: 20180215
  Transmission Date: 20180508
  Serious: Yes (Other)
  Sender: FDA-Public Use
  Company Number: US-ALEXION PHARMACEUTICALS INC.-A201709423

PATIENT
  Sex: Female

DRUGS (3)
  1. SOLIRIS [Suspect]
     Active Substance: ECULIZUMAB
     Dosage: UNK
     Route: 042
  2. SOLIRIS [Suspect]
     Active Substance: ECULIZUMAB
     Dosage: UNK UNK, Q3W
     Route: 065
  3. SOLIRIS [Suspect]
     Active Substance: ECULIZUMAB
     Indication: HAEMOLYTIC URAEMIC SYNDROME
     Dosage: UNK
     Route: 042

REACTIONS (9)
  - Inappropriate schedule of drug administration [Unknown]
  - Constipation [Unknown]
  - Balance disorder [Unknown]
  - Nausea [Unknown]
  - Chest pain [Unknown]
  - Fatigue [Unknown]
  - Dizziness [Unknown]
  - Impaired work ability [Unknown]
  - Hemiparesis [Unknown]

NARRATIVE: CASE EVENT DATE: 20170814
